FAERS Safety Report 15580369 (Version 1)
Quarter: 2018Q4

REPORT INFORMATION
  Report Type: Spontaneous
  Country: BR (occurrence: BR)
  Receive Date: 20181102
  Receipt Date: 20181102
  Transmission Date: 20190205
  Serious: Yes (Other)
  Sender: FDA-Public Use
  Company Number: BR-CELGENEUS-BRA-20181009561

PATIENT
  Sex: Female

DRUGS (2)
  1. VIDAZA [Suspect]
     Active Substance: AZACITIDINE
     Indication: MYELODYSPLASTIC SYNDROME
     Dosage: 100 MILLIGRAM
     Route: 058
     Dates: start: 20150501
  2. PRIMROSE [Concomitant]
     Indication: PRODUCT USED FOR UNKNOWN INDICATION
     Route: 061
     Dates: start: 201808

REACTIONS (7)
  - Skin exfoliation [Recovering/Resolving]
  - Vomiting [Recovering/Resolving]
  - Aphthous ulcer [Not Recovered/Not Resolved]
  - Injection site erythema [Recovering/Resolving]
  - Scar [Recovered/Resolved]
  - Nausea [Recovering/Resolving]
  - Haemoglobin decreased [Recovering/Resolving]
